FAERS Safety Report 23417013 (Version 4)
Quarter: 2024Q2

REPORT INFORMATION
  Report Type: Spontaneous
  Country: US (occurrence: US)
  Receive Date: 20240118
  Receipt Date: 20240509
  Transmission Date: 20240715
  Serious: Yes (Other)
  Sender: FDA-Public Use
  Company Number: US-ALCON LABORATORIES-ALC2024US000640

PATIENT
  Sex: Male

DRUGS (1)
  1. ROCKLATAN [Suspect]
     Active Substance: LATANOPROST\NETARSUDIL MESYLATE
     Indication: Product used for unknown indication
     Dosage: 1 GTT OU QHS
     Route: 047

REACTIONS (3)
  - Cornea verticillata [Recovered/Resolved]
  - Night blindness [Recovered/Resolved]
  - Vision blurred [Recovered/Resolved]
